FAERS Safety Report 22228759 (Version 1)
Quarter: 2023Q2

REPORT INFORMATION
  Report Type: Report from Study
  Country: US (occurrence: US)
  Receive Date: 20230419
  Receipt Date: 20230419
  Transmission Date: 20230722
  Serious: Yes (Other)
  Sender: FDA-Public Use
  Company Number: US-TAKEDA-US202021966

PATIENT
  Sex: Female

DRUGS (1)
  1. HUMAN IMMUNOGLOBULIN G [Suspect]
     Active Substance: HUMAN IMMUNOGLOBULIN G
     Indication: Hypogammaglobulinaemia
     Dosage: UNK
     Route: 042

REACTIONS (7)
  - Juvenile idiopathic arthritis [Unknown]
  - Sleep disorder [Unknown]
  - COVID-19 [Unknown]
  - Therapy non-responder [Unknown]
  - Nausea [Unknown]
  - Vomiting [Unknown]
  - Complication associated with device [Unknown]
